FAERS Safety Report 18681847 (Version 1)
Quarter: 2020Q4

REPORT INFORMATION
  Report Type: Spontaneous
  Country: CA (occurrence: CA)
  Receive Date: 20201230
  Receipt Date: 20201230
  Transmission Date: 20210114
  Serious: Yes (Other)
  Sender: FDA-Public Use
  Company Number: CA-ACCORD-212659

PATIENT
  Age: 5 Year
  Sex: Male

DRUGS (1)
  1. MONTELUKAST [Suspect]
     Active Substance: MONTELUKAST SODIUM
     Indication: ASTHMA
     Dosage: EVERY 1 DAYS
     Route: 065

REACTIONS (11)
  - Abnormal behaviour [Recovered/Resolved]
  - Depression [Recovered/Resolved]
  - Head discomfort [Recovered/Resolved]
  - Suicidal ideation [Recovered/Resolved]
  - Frustration tolerance decreased [Recovered/Resolved]
  - Abdominal discomfort [Recovered/Resolved]
  - Gait disturbance [Recovered/Resolved]
  - Homicidal ideation [Recovered/Resolved]
  - Nightmare [Recovered/Resolved]
  - Intentional self-injury [Recovered/Resolved]
  - Obsessive-compulsive disorder [Recovered/Resolved]
